FAERS Safety Report 24054843 (Version 3)
Quarter: 2024Q3

REPORT INFORMATION
  Report Type: Spontaneous
  Country: ES (occurrence: ES)
  Receive Date: 20240705
  Receipt Date: 20240716
  Transmission Date: 20241017
  Serious: Yes (Hospitalization, Other)
  Sender: MYLAN
  Company Number: ES-BAXTER-2024BAX018311

PATIENT
  Age: 67 Year
  Sex: Female
  Weight: 69.1 kg

DRUGS (53)
  1. OMEPRAZOLE [Suspect]
     Active Substance: OMEPRAZOLE
     Indication: Product used for unknown indication
     Dosage: ONGOING
     Route: 065
     Dates: start: 2023
  2. ACETAMINOPHEN [Suspect]
     Active Substance: ACETAMINOPHEN
     Indication: Premedication
     Dosage: UNK, ONGOING
     Route: 065
     Dates: start: 20240226
  3. ACETAMINOPHEN [Suspect]
     Active Substance: ACETAMINOPHEN
     Dosage: 1000 MILLIGRAM
     Route: 065
     Dates: start: 20240408, end: 20240408
  4. ACETAMINOPHEN [Suspect]
     Active Substance: ACETAMINOPHEN
     Dosage: 1000 MILLIGRAM
     Route: 042
     Dates: start: 20240425, end: 20240425
  5. ACYCLOVIR [Suspect]
     Active Substance: ACYCLOVIR
     Indication: Product used for unknown indication
     Dosage: ONGOING
     Route: 065
     Dates: start: 2023
  6. APIXABAN [Suspect]
     Active Substance: APIXABAN
     Indication: Product used for unknown indication
     Dosage: UNK, ONGOING
     Route: 065
     Dates: start: 20240226
  7. PREGABALIN [Suspect]
     Active Substance: PREGABALIN
     Indication: Product used for unknown indication
     Dosage: UNK, ONGOING
     Route: 065
     Dates: start: 20240226
  8. LORAZEPAM [Suspect]
     Active Substance: LORAZEPAM
     Indication: Product used for unknown indication
     Dosage: UNK
     Route: 065
     Dates: start: 202301
  9. DOXORUBICIN [Suspect]
     Active Substance: DOXORUBICIN
     Indication: Product used for unknown indication
     Dosage: UNK
     Route: 065
     Dates: start: 20230301, end: 20230616
  10. RITUXIMAB [Suspect]
     Active Substance: RITUXIMAB
     Indication: Diffuse large B-cell lymphoma stage I
     Dosage: CYCLE (CYCLE 1, AS A PART OF R-ICE REGIMEN)
     Route: 042
     Dates: start: 20240205, end: 20240205
  11. RITUXIMAB [Suspect]
     Active Substance: RITUXIMAB
     Dosage: 375 MILLIGRAM/SQ. METER, CYCLE, CYCLE (CYCLE 2, AS A PART OF R-ICE REGIMEN)
     Route: 042
     Dates: start: 20240320, end: 20240320
  12. RITUXIMAB [Suspect]
     Active Substance: RITUXIMAB
     Dosage: 375 MILLIGRAM/SQ. METER, CYCLE (CYCLE 3, ONGOING, AS A PART OF R-ICE REGIMEN)
     Route: 042
     Dates: start: 20240423
  13. DEXCHLORPHENIRAMINE [Suspect]
     Active Substance: DEXCHLORPHENIRAMINE
     Indication: Premedication
     Dosage: 2 MILLIGRAM (INTRAVENOUS)
     Route: 042
     Dates: start: 20240418, end: 20240418
  14. DEXCHLORPHENIRAMINE [Suspect]
     Active Substance: DEXCHLORPHENIRAMINE
     Dosage: 12 MILLIGRAM
     Route: 042
     Dates: start: 20240425
  15. ACETAMINOPHEN [Suspect]
     Active Substance: ACETAMINOPHEN
     Indication: Premedication
     Dosage: 1000 MILLIGRAM
     Route: 042
     Dates: start: 20240425
  16. DEXCHLORPHENIRAMINE [Suspect]
     Active Substance: DEXCHLORPHENIRAMINE
     Indication: Premedication
     Dosage: 2 MILLIGRAM
     Route: 048
     Dates: start: 20240408, end: 20240408
  17. DEXCHLORPHENIRAMINE [Suspect]
     Active Substance: DEXCHLORPHENIRAMINE
     Dosage: UNK
     Route: 065
     Dates: start: 20240408, end: 20240408
  18. DEXCHLORPHENIRAMINE [Suspect]
     Active Substance: DEXCHLORPHENIRAMINE
     Dosage: UNK
     Route: 065
     Dates: start: 20240418
  19. DEXCHLORPHENIRAMINE [Suspect]
     Active Substance: DEXCHLORPHENIRAMINE
     Dosage: UNK
     Route: 065
     Dates: start: 20240425
  20. DEXCHLORPHENIRAMINE [Suspect]
     Active Substance: DEXCHLORPHENIRAMINE
     Dosage: 12 MILLIGRAM
     Route: 065
     Dates: start: 20240425
  21. IFOSFAMIDE [Suspect]
     Active Substance: IFOSFAMIDE
     Indication: Diffuse large B-cell lymphoma stage I
     Dosage: CYCLE (CYCLE 1, FORMULATION: INFUSION, AS A PART OF R-ICE REGIMEN)
     Route: 042
     Dates: start: 20240206, end: 20240322
  22. IFOSFAMIDE [Suspect]
     Active Substance: IFOSFAMIDE
     Dosage: 5 MILLIGRAM/SQ. METER, CYCLE
     Route: 042
     Dates: start: 20240321, end: 20240322
  23. IFOSFAMIDE [Suspect]
     Active Substance: IFOSFAMIDE
     Dosage: 5 MILLIGRAM/SQ. METER, CYCLE, CYCLE 3, FORMULATION: INFUSION, AS A PART OF R-ICE REGIMEN
     Route: 042
     Dates: start: 20240424, end: 20240425
  24. IFOSFAMIDE [Suspect]
     Active Substance: IFOSFAMIDE
     Dosage: 5 MILLIGRAM/SQ. METER (FORMULATION: INFUSION, AS A PART OF R-ICE REGIMEN)
     Route: 065
     Dates: start: 20240425
  25. TRIMETHOPRIM [Suspect]
     Active Substance: TRIMETHOPRIM
     Indication: Product used for unknown indication
     Dosage: ONGOING
     Route: 065
     Dates: start: 20240226
  26. ETOPOSIDE [Suspect]
     Active Substance: ETOPOSIDE
     Indication: Diffuse large B-cell lymphoma stage I
     Dosage: CYCLE (CYCLE 1, AS A PART OF R-ICE REGIMEN)
     Route: 042
     Dates: start: 20240205, end: 20240207
  27. ETOPOSIDE [Suspect]
     Active Substance: ETOPOSIDE
     Dosage: 50 MILLIGRAM/SQ. METER, CYCLE, CYCLE ( CYCLE 2, AS A PART OF R-ICE REGIMEN)
     Route: 042
     Dates: start: 20240320, end: 20240322
  28. ETOPOSIDE [Suspect]
     Active Substance: ETOPOSIDE
     Dosage: 50 MILLIGRAM/SQ. METER, CYCLE, CYCLE (CYCLE 3, AS A PART OF R-ICE REGIMEN)
     Route: 042
     Dates: start: 20240423, end: 20240425
  29. ETOPOSIDE [Suspect]
     Active Substance: ETOPOSIDE
     Dosage: 50 MILLIGRAM/SQ. METER (AS A PART OF R-ICE REGIMEN)
     Route: 065
     Dates: start: 20240425
  30. EPCORITAMAB [Suspect]
     Active Substance: EPCORITAMAB
     Indication: Diffuse large B-cell lymphoma stage I
     Dosage: 0.16 MILLIGRAM, CYCLE ( CYCLE 1, PRIMING DOSE)
     Route: 058
     Dates: start: 20240207, end: 20240207
  31. EPCORITAMAB [Suspect]
     Active Substance: EPCORITAMAB
     Dosage: 0.16 MG (RE-PRIMING DOSE 1)
     Route: 058
     Dates: start: 20240229, end: 20240229
  32. EPCORITAMAB [Suspect]
     Active Substance: EPCORITAMAB
     Dosage: 0.8 MILLIGRAM (RE-PRIMING INTERMEDIATE DOSE)
     Route: 058
     Dates: start: 20240307, end: 20240307
  33. EPCORITAMAB [Suspect]
     Active Substance: EPCORITAMAB
     Dosage: 48 MILLIGRAM (FIRST FULL DOSE, RE-PRIMING 1)
     Route: 058
     Dates: start: 20240314, end: 20240314
  34. EPCORITAMAB [Suspect]
     Active Substance: EPCORITAMAB
     Dosage: UNK, C2D1
     Route: 058
     Dates: start: 20240322, end: 20240322
  35. EPCORITAMAB [Suspect]
     Active Substance: EPCORITAMAB
     Dosage: UNK, C2D8
     Route: 058
     Dates: start: 20240410, end: 20240410
  36. EPCORITAMAB [Suspect]
     Active Substance: EPCORITAMAB
     Dosage: 48 MILLIGRAM (C2D15, ONGOING, FULL DOSE, LATEST DOSE ADMINISTERED PRIOR TO THE EVENT ONSET)
     Route: 058
     Dates: start: 20240418
  37. EPCORITAMAB [Suspect]
     Active Substance: EPCORITAMAB
     Dosage: 48 MILLIGRAM
     Route: 065
     Dates: start: 20240425
  38. EPCORITAMAB [Suspect]
     Active Substance: EPCORITAMAB
     Dosage: 48 MILLIGRAM, CYCLE (CYCLE 3 DAY 15 (C3D15))
     Route: 065
     Dates: start: 20240503
  39. CARBOPLATIN [Suspect]
     Active Substance: CARBOPLATIN
     Indication: Diffuse large B-cell lymphoma stage I
     Dosage: CYCLE (5 AUC, CYCLE 1, AS A PART OF R-ICE REGIMEN)
     Route: 042
     Dates: start: 20240206, end: 20240206
  40. CARBOPLATIN [Suspect]
     Active Substance: CARBOPLATIN
     Dosage: CYCLE (2 AUC, CYCLE 2, AS A PART OF R-ICE REGIMEN)
     Route: 042
     Dates: start: 20240321, end: 20240321
  41. CARBOPLATIN [Suspect]
     Active Substance: CARBOPLATIN
     Dosage: CYCLE (2 AUC, CYCLE 3, ONGOING, AS A PART OF R-ICE REGIMEN)
     Route: 042
     Dates: start: 20240424
  42. ERGOCALCIFEROL [Suspect]
     Active Substance: ERGOCALCIFEROL
     Indication: Product used for unknown indication
     Dosage: UNK, ONGOING
     Route: 065
     Dates: start: 20240226
  43. CYCLOPHOSPHAMIDE [Suspect]
     Active Substance: CYCLOPHOSPHAMIDE
     Indication: Product used for unknown indication
     Dosage: UNK
     Route: 065
     Dates: start: 20230301, end: 20230616
  44. CALCIUM [Suspect]
     Active Substance: CALCIUM
     Indication: Product used for unknown indication
     Dosage: UNK, ONGOING
     Route: 065
     Dates: start: 20240226
  45. TRAMADOL [Concomitant]
     Active Substance: TRAMADOL\TRAMADOL HYDROCHLORIDE
     Indication: Product used for unknown indication
     Dosage: UNK, ONGOING
     Route: 065
     Dates: start: 20240226
  46. SULFAMETHOXAZOLE [Concomitant]
     Active Substance: SULFAMETHOXAZOLE
     Indication: Product used for unknown indication
     Dosage: UNK, ONGOING
     Route: 065
     Dates: start: 20240226
  47. METOCLOPRAMIDE [Concomitant]
     Active Substance: METOCLOPRAMIDE
     Indication: Product used for unknown indication
     Dosage: UNK
     Route: 065
     Dates: start: 20240506, end: 20240509
  48. VITAMIN D [Concomitant]
     Active Substance: VITAMIN D NOS
     Dosage: UNK
     Route: 065
     Dates: start: 2011
  49. MAGNESIUM SULFATE [Concomitant]
     Active Substance: MAGNESIUM SULFATE\MAGNESIUM SULFATE HEPTAHYDRATE
     Indication: Product used for unknown indication
     Dosage: UNK
     Route: 065
     Dates: start: 20240506, end: 20240506
  50. PIPERACILLIN [Concomitant]
     Active Substance: PIPERACILLIN
     Indication: Product used for unknown indication
     Dosage: UNK
     Route: 065
     Dates: start: 20240506, end: 20240509
  51. ONDANSETRON [Concomitant]
     Active Substance: ONDANSETRON
     Indication: Product used for unknown indication
     Dosage: UNK
     Route: 065
     Dates: start: 20240506, end: 20240509
  52. TAZOBACTAM [Concomitant]
     Active Substance: TAZOBACTAM
     Indication: Product used for unknown indication
     Dosage: UNK
     Route: 065
     Dates: start: 20240506, end: 20240509
  53. METAMIZOLE [Concomitant]
     Active Substance: METAMIZOLE
     Indication: Product used for unknown indication
     Dosage: UNK
     Route: 065
     Dates: start: 20240506, end: 20240506

REACTIONS (1)
  - Febrile neutropenia [Recovered/Resolved]

NARRATIVE: CASE EVENT DATE: 20240506
